FAERS Safety Report 18436132 (Version 1)
Quarter: 2020Q4

REPORT INFORMATION
  Report Type: Spontaneous
  Country: GB (occurrence: GB)
  Receive Date: 20201028
  Receipt Date: 20201028
  Transmission Date: 20210114
  Serious: Yes (Other)
  Sender: FDA-Public Use
  Company Number: GB-TEVA-2020-GB-1842169

PATIENT
  Age: 5 Year
  Sex: Male

DRUGS (8)
  1. PEGYLATED ASPARAGINASE [Suspect]
     Active Substance: PEGASPARGASE
     Indication: B PRECURSOR TYPE ACUTE LEUKAEMIA
     Route: 065
  2. VINCRISTINE [Suspect]
     Active Substance: VINCRISTINE
     Indication: B PRECURSOR TYPE ACUTE LEUKAEMIA
     Route: 037
  3. METHOTREXATE. [Suspect]
     Active Substance: METHOTREXATE
     Indication: B PRECURSOR TYPE ACUTE LEUKAEMIA
     Route: 037
  4. ADRENALINE [Concomitant]
     Active Substance: EPINEPHRINE
     Indication: STRIDOR
     Dosage: NEBULISED
  5. DEXAMETHASONE. [Suspect]
     Active Substance: DEXAMETHASONE
     Indication: STRIDOR
     Dosage: ONE DOSE
     Route: 048
  6. REMDESIVIR. [Suspect]
     Active Substance: REMDESIVIR
     Indication: COVID-19
     Dosage: LOADING DOSE 5MG/KG
     Route: 042
  7. REMDESIVIR. [Suspect]
     Active Substance: REMDESIVIR
     Dosage: 2.5 MG/KG DAILY;
     Route: 042
  8. DEXAMETHASONE. [Suspect]
     Active Substance: DEXAMETHASONE
     Indication: B PRECURSOR TYPE ACUTE LEUKAEMIA
     Route: 037

REACTIONS (3)
  - Off label use [Unknown]
  - Product use issue [Unknown]
  - Alanine aminotransferase increased [Recovered/Resolved]
